FAERS Safety Report 7287826-4 (Version None)
Quarter: 2011Q1

REPORT INFORMATION
  Report Type: 
  Country: None (occurrence: None)
  Receive Date: 20110211
  Receipt Date: 20110208
  Transmission Date: 20110831
  Serious: No
  Sender: FDA-Public Use
  Company Number: US-PFIZER INC-2011028609

PATIENT
  Sex: Female
  Weight: 63.492 kg

DRUGS (3)
  1. FOSINOPRIL [Concomitant]
     Dosage: 20 MG, UNK
  2. LIPITOR [Suspect]
     Indication: BLOOD CHOLESTEROL INCREASED
     Dosage: 20 MG, DAILY
     Route: 048
     Dates: start: 20100101, end: 20110208
  3. METOPROLOL [Concomitant]
     Dosage: 100 MG, DAILY

REACTIONS (1)
  - RASH [None]
